FAERS Safety Report 5642414-8 (Version None)
Quarter: 2008Q1

REPORT INFORMATION
  Report Type: 
  Country: None (occurrence: None)
  Receive Date: 20080227
  Receipt Date: 20080227
  Transmission Date: 20080703
  Serious: Yes (Other)
  Sender: FDA-Public Use
  Company Number: None

PATIENT
  Age: 70 Year
  Sex: Female

DRUGS (10)
  1. FOSAMAX [Suspect]
     Indication: OSTEOPENIA
     Dosage: 70MG WEEKLY
     Dates: end: 20060101
  2. TOPROL-XL [Concomitant]
  3. LEVOXYL [Concomitant]
  4. HYZAAR [Concomitant]
  5. ASPIRIN [Concomitant]
  6. ALLEGRA [Concomitant]
  7. NIASPAN [Concomitant]
  8. DILTIAZEM [Concomitant]
  9. PENICILLIN [Concomitant]
  10. AVELOX [Concomitant]

REACTIONS (6)
  - IMPAIRED HEALING [None]
  - OSTEOMYELITIS [None]
  - OSTEONECROSIS [None]
  - PAIN [None]
  - SOFT TISSUE DISORDER [None]
  - WOUND SECRETION [None]
